FAERS Safety Report 21926099 (Version 1)
Quarter: 2023Q1

REPORT INFORMATION
  Report Type: Spontaneous
  Country: US (occurrence: None)
  Receive Date: 20230127
  Receipt Date: 20230127
  Transmission Date: 20230418
  Serious: No
  Sender: FDA-Public Use
  Company Number: None

PATIENT
  Age: 55 Year
  Sex: Female
  Weight: 112.94 kg

DRUGS (12)
  1. IBRANCE [Suspect]
     Active Substance: PALBOCICLIB
     Dosage: 75MG 3W ON 1W OFF ORAL?
     Route: 048
  2. BISACODYL [Concomitant]
     Active Substance: BISACODYL
  3. CIMETIDINE [Concomitant]
     Active Substance: CIMETIDINE
  4. CITALOPRAM [Concomitant]
     Active Substance: CITALOPRAM HYDROBROMIDE
  5. FLUTICASONE [Concomitant]
     Active Substance: FLUTICASONE
  6. FUROSEMIDE [Concomitant]
     Active Substance: FUROSEMIDE
  7. HYDROXYZINE [Concomitant]
     Active Substance: HYDROXYZINE HYDROCHLORIDE
  8. LETROZOLE [Concomitant]
     Active Substance: LETROZOLE
  9. MELOXICAM [Concomitant]
     Active Substance: MELOXICAM
  10. METOPROLOL [Concomitant]
     Active Substance: METOPROLOL
  11. OFLOXACIN [Concomitant]
     Active Substance: OFLOXACIN
  12. WARFARIN [Concomitant]
     Active Substance: WARFARIN

REACTIONS (1)
  - White blood cell count decreased [None]
